FAERS Safety Report 7883935-7 (Version None)
Quarter: 2011Q4

REPORT INFORMATION
  Report Type: 
  Country: None (occurrence: None)
  Receive Date: 20111102
  Receipt Date: 20111028
  Transmission Date: 20120403
  Serious: Yes (Other)
  Sender: FDA-Public Use
  Company Number: BE-JNJFOC-20111007341

PATIENT
  Age: 52 Year
  Sex: Female
  Weight: 77.8 kg

DRUGS (5)
  1. PROZAC [Concomitant]
     Dosage: SINCE LONGTIME
     Route: 065
  2. TRAZODONE HCL [Concomitant]
     Dosage: SINCE LONGTIME
     Route: 065
  3. INVEGA [Suspect]
     Route: 048
     Dates: start: 20110810
  4. MANIPREX [Concomitant]
     Dosage: SINCE LONGTIME
     Route: 065
  5. INVEGA [Suspect]
     Indication: BIPOLAR DISORDER
     Route: 048
     Dates: end: 20111017

REACTIONS (4)
  - GLUTATHIONE S-TRANSFERASE INCREASED [None]
  - ALANINE AMINOTRANSFERASE INCREASED [None]
  - LIVER FUNCTION TEST ABNORMAL [None]
  - ASPARTATE AMINOTRANSFERASE INCREASED [None]
